FAERS Safety Report 6382894-6 (Version None)
Quarter: 2009Q3

REPORT INFORMATION
  Report Type: 
  Country: None (occurrence: None)
  Receive Date: 20090930
  Receipt Date: 20090924
  Transmission Date: 20100115
  Serious: Yes (Other)
  Sender: FDA-Public Use
  Company Number: US-AMGEN-KDL366752

PATIENT
  Sex: Female
  Weight: 52.2 kg

DRUGS (6)
  1. PROCRIT [Suspect]
     Indication: ANAEMIA
     Dates: start: 20000101
  2. ALLOPURINOL [Concomitant]
  3. DIOVAN [Concomitant]
  4. METOPROLOL SUCCINATE [Concomitant]
  5. CRESTOR [Concomitant]
  6. ACENOCOUMAROL [Concomitant]

REACTIONS (5)
  - CONFUSIONAL STATE [None]
  - FALL [None]
  - PAIN IN EXTREMITY [None]
  - READING DISORDER [None]
  - VISUAL IMPAIRMENT [None]
